FAERS Safety Report 11785474 (Version 1)
Quarter: 2015Q4

REPORT INFORMATION
  Report Type: Report from Study
  Country: DE (occurrence: DE)
  Receive Date: 20151130
  Receipt Date: 20151130
  Transmission Date: 20160305
  Serious: Yes (Hospitalization)
  Sender: FDA-Public Use
  Company Number: DE-BIOGENIDEC-2015BI154297

PATIENT
  Age: 32 Year
  Sex: Male

DRUGS (7)
  1. XUSAL [Concomitant]
     Active Substance: LEVOCETIRIZINE DIHYDROCHLORIDE
     Indication: PROPHYLAXIS
     Route: 048
     Dates: start: 20150821, end: 20150828
  2. LEMTRADA [Concomitant]
     Active Substance: ALEMTUZUMAB
     Indication: GENERAL SYMPTOM
     Route: 042
     Dates: start: 20150823, end: 20150828
  3. TYSABRI [Suspect]
     Active Substance: NATALIZUMAB
     Indication: RELAPSING-REMITTING MULTIPLE SCLEROSIS
     Dates: start: 20110826
  4. IBUPROFEN. [Concomitant]
     Active Substance: IBUPROFEN
     Indication: PROPHYLAXIS
     Route: 048
     Dates: start: 20150823, end: 20150828
  5. PANTOZOL [Concomitant]
     Active Substance: PANTOPRAZOLE SODIUM
     Indication: PROPHYLAXIS
     Route: 048
     Dates: start: 20150824, end: 20150828
  6. URBASON [Concomitant]
     Active Substance: METHYLPREDNISOLONE
     Indication: PROPHYLAXIS
     Route: 042
     Dates: start: 20150823, end: 20150828
  7. ACICLOVIR [Concomitant]
     Active Substance: ACYCLOVIR
     Indication: PROPHYLAXIS
     Route: 048
     Dates: start: 20150824, end: 20150925

REACTIONS (1)
  - Listeria sepsis [Recovered/Resolved]

NARRATIVE: CASE EVENT DATE: 20150831
